FAERS Safety Report 9279367 (Version 1)
Quarter: 2013Q2

REPORT INFORMATION
  Report Type: Spontaneous
  Country: FR (occurrence: FR)
  Receive Date: 20130508
  Receipt Date: 20130508
  Transmission Date: 20140414
  Serious: Yes (Other)
  Sender: FDA-Public Use
  Company Number: FR-PFIZER INC-2013139454

PATIENT
  Age: 68 Year
  Sex: Female

DRUGS (12)
  1. SOLU-MEDROL [Suspect]
     Indication: PREMEDICATION
     Dosage: 40 MG, SINGLE
     Route: 042
     Dates: start: 20130124
  2. AZANTAC [Suspect]
     Indication: PREMEDICATION
     Dosage: 50 MG, SINGLE
     Route: 042
     Dates: start: 20130124, end: 20130124
  3. ZOPHREN [Concomitant]
     Indication: PREMEDICATION
     Dosage: 2 MG, SINGLE
     Route: 042
     Dates: start: 20130124, end: 20130124
  4. POLARAMINE [Concomitant]
     Indication: PREMEDICATION
     Dosage: 5 MG, SINGLE
     Route: 042
     Dates: start: 20130124, end: 20130124
  5. SODIUM CHLORIDE [Concomitant]
     Indication: PREMEDICATION
  6. CORDARONE [Concomitant]
  7. XARELTO [Concomitant]
  8. LEVOTHYROX [Concomitant]
  9. CARDENSIEL [Concomitant]
  10. GLUCOPHAGE [Concomitant]
  11. INIPOMP [Concomitant]
  12. ZYMAD [Concomitant]

REACTIONS (12)
  - Dyspnoea [Recovered/Resolved]
  - Laryngeal oedema [Recovered/Resolved]
  - Laryngospasm [Recovered/Resolved]
  - Tachypnoea [Recovered/Resolved]
  - Tachycardia [Recovered/Resolved]
  - Bronchospasm [Recovered/Resolved]
  - Erythema [Recovered/Resolved]
  - Pain [Recovered/Resolved]
  - Hypertension [Recovered/Resolved]
  - Chills [Recovered/Resolved]
  - Hyperhidrosis [Recovered/Resolved]
  - Muscle spasms [Recovered/Resolved]
